FAERS Safety Report 5311091-8 (Version None)
Quarter: 2007Q2

REPORT INFORMATION
  Report Type: 
  Country: None (occurrence: None)
  Receive Date: 20070427
  Receipt Date: 20070427
  Transmission Date: 20071010
  Serious: Yes (Hospitalization)
  Sender: FDA-Public Use
  Company Number: None

PATIENT
  Sex: Female
  Weight: 79 kg

DRUGS (5)
  1. CISPLATIN [Suspect]
     Dosage: 92 MG
  2. VICODIN [Concomitant]
  3. BP MEDS [Concomitant]
  4. REGLAN [Concomitant]
  5. CLONIDINE [Concomitant]

REACTIONS (3)
  - FOOD INTOLERANCE [None]
  - NAUSEA [None]
  - VOMITING [None]
